FAERS Safety Report 5426867-6 (Version None)
Quarter: 2007Q3

REPORT INFORMATION
  Report Type: 
  Country: None (occurrence: None)
  Receive Date: 20070827
  Receipt Date: 20070827
  Transmission Date: 20080115
  Serious: Yes (Hospitalization)
  Sender: FDA-Public Use
  Company Number: US-BOEHRINGER INGELHEIM PHARMACEUTICALS, INC.-2007-DE-04889GD

PATIENT
  Age: 18 Year
  Sex: Male

DRUGS (9)
  1. CLONIDINE [Suspect]
     Indication: CANCER PAIN
     Route: 037
  2. METHADONE HCL [Suspect]
     Indication: CANCER PAIN
  3. FENTANYL [Suspect]
     Indication: CANCER PAIN
     Route: 037
  4. BUPIVACAINE [Suspect]
     Indication: CANCER PAIN
     Route: 037
  5. SUFENTANIL CITRATE [Suspect]
     Indication: CANCER PAIN
     Dosage: 19 MCG/HR WITH 29 MCG EVERY 6 HOURS AS NEEDED
     Route: 051
  6. MIDAZOLAM HCL [Concomitant]
     Dosage: 15 MG/HR WITH 15 MG EVERY HOUR AS NEEDED
  7. NALTREXONE [Concomitant]
     Dosage: ULTRA-LOW-DOSE
  8. MIRTAZAPINE [Concomitant]
  9. LORAZEPAM [Concomitant]
     Dosage: 3 MG/HR WITH 0.5 MG EVERY HOUR AS NEEDED

REACTIONS (2)
  - DRUG INEFFECTIVE [None]
  - DRUG TOLERANCE [None]
